FAERS Safety Report 5635837-4 (Version None)
Quarter: 2008Q1

REPORT INFORMATION
  Report Type: 
  Country: None (occurrence: None)
  Receive Date: 20080221
  Receipt Date: 20080212
  Transmission Date: 20080703
  Serious: Yes (Hospitalization)
  Sender: FDA-Public Use
  Company Number: STI-2008-00372

PATIENT
  Age: 72 Year
  Sex: Female

DRUGS (2)
  1. BETADERM [Suspect]
     Indication: ALOPECIA
     Dosage: (DROP BY DROP ALTERNATE DAYS) ONE SCALP WHERE LESS HAIR
  2. CAPTOPRIL [Concomitant]

REACTIONS (5)
  - EAR DISCOMFORT [None]
  - EAR DISORDER [None]
  - EAR PAIN [None]
  - HEADACHE [None]
  - SWELLING [None]
